FAERS Safety Report 25348474 (Version 4)
Quarter: 2025Q3

REPORT INFORMATION
  Report Type: Report from Study
  Country: US (occurrence: US)
  Receive Date: 20250522
  Receipt Date: 20250813
  Transmission Date: 20251020
  Serious: Yes (Other)
  Sender: TAKEDA
  Company Number: US-TAKEDA-2024TUS107488

PATIENT
  Sex: Female
  Weight: 91 kg

DRUGS (15)
  1. VEDOLIZUMAB [Suspect]
     Active Substance: VEDOLIZUMAB
     Indication: Colitis ulcerative
     Dosage: 108 MILLIGRAM, Q2WEEKS
     Dates: start: 20241017
  2. VEDOLIZUMAB [Suspect]
     Active Substance: VEDOLIZUMAB
     Dosage: 108 MILLIGRAM, Q2WEEKS
  3. VEDOLIZUMAB [Suspect]
     Active Substance: VEDOLIZUMAB
     Dosage: 108 MILLIGRAM, Q2WEEKS
  4. HERBALS\TURMERIC [Concomitant]
     Active Substance: HERBALS\TURMERIC
  5. GINGER [Concomitant]
     Active Substance: GINGER
  6. ALPRAZOLAM [Concomitant]
     Active Substance: ALPRAZOLAM
  7. ALPRAZOLAM [Concomitant]
     Active Substance: ALPRAZOLAM
  8. PANTOPRAZOLE SODIUM [Concomitant]
     Active Substance: PANTOPRAZOLE SODIUM
  9. BIOTIN [Concomitant]
     Active Substance: BIOTIN
  10. FLUOXETINE HYDROCHLORIDE [Concomitant]
     Active Substance: FLUOXETINE HYDROCHLORIDE
  11. BUPROPION HYDROCHLORIDE [Concomitant]
     Active Substance: BUPROPION HYDROCHLORIDE
  12. CLARITIN [Concomitant]
     Active Substance: LORATADINE
  13. CANNABIS SATIVA SUBSP. INDICA TOP [Concomitant]
     Active Substance: CANNABIS SATIVA SUBSP. INDICA TOP
  14. MESALAMINE [Concomitant]
     Active Substance: MESALAMINE
  15. OMEPRAZOLE [Concomitant]
     Active Substance: OMEPRAZOLE

REACTIONS (10)
  - Colitis ulcerative [Not Recovered/Not Resolved]
  - Injection site extravasation [Unknown]
  - Incorrect dose administered [Unknown]
  - Product dose omission issue [Unknown]
  - Device leakage [Not Recovered/Not Resolved]
  - Drug ineffective [Not Recovered/Not Resolved]
  - Malaise [Unknown]
  - Vomiting [Unknown]
  - Headache [Unknown]
  - Inappropriate schedule of product administration [Unknown]
